FAERS Safety Report 5419134-8 (Version None)
Quarter: 2007Q3

REPORT INFORMATION
  Report Type: 
  Country: None (occurrence: None)
  Receive Date: 20070820
  Receipt Date: 20070813
  Transmission Date: 20080115
  Serious: Yes (Disabling, Other)
  Sender: FDA-Public Use
  Company Number: PHBS2007LB13522

PATIENT
  Age: 67 Year
  Sex: Female
  Weight: 54 kg

DRUGS (4)
  1. ZOMETA [Suspect]
     Indication: METASTASES TO BONE
     Dosage: 15 MG, UNK
     Route: 042
     Dates: start: 20051001, end: 20061201
  2. HERCEPTIN [Concomitant]
  3. FEMARA [Concomitant]
  4. XELODA [Concomitant]

REACTIONS (7)
  - BIOPSY BONE ABNORMAL [None]
  - IMPAIRED HEALING [None]
  - ORAL INFECTION [None]
  - OSTEONECROSIS [None]
  - TOOTH EXTRACTION [None]
  - TOOTHACHE [None]
  - X-RAY [None]
